FAERS Safety Report 14491420 (Version 1)
Quarter: 2018Q1

REPORT INFORMATION
  Report Type: Spontaneous
  Country: CN (occurrence: CN)
  Receive Date: 20180206
  Receipt Date: 20180206
  Transmission Date: 20180509
  Serious: Yes (Hospitalization, Other)
  Sender: FDA-Public Use
  Company Number: CN-VIIV HEALTHCARE LIMITED-CN2018GSK018141

PATIENT
  Age: 58 Year
  Sex: Male
  Weight: 52 kg

DRUGS (2)
  1. STOCRIN (EFAVIRENZ) [Suspect]
     Active Substance: EFAVIRENZ
     Indication: VIRAL INFECTION
     Dosage: 0.6 G, QD
     Route: 048
     Dates: start: 20170711, end: 20171207
  2. HEPTODIN [Suspect]
     Active Substance: LAMIVUDINE
     Indication: VIRAL INFECTION
     Dosage: 0.3 G, QD
     Route: 048
     Dates: start: 20170711, end: 20171207

REACTIONS (3)
  - Drug-induced liver injury [Recovering/Resolving]
  - Decreased appetite [Recovering/Resolving]
  - Hepatic function abnormal [Recovering/Resolving]

NARRATIVE: CASE EVENT DATE: 20171207
